FAERS Safety Report 7505373-9 (Version None)
Quarter: 2011Q2

REPORT INFORMATION
  Report Type: 
  Country: None (occurrence: None)
  Receive Date: 20110526
  Receipt Date: 20110516
  Transmission Date: 20111010
  Serious: Yes (Other)
  Sender: FDA-Public Use
  Company Number: US-JNJFOC-20090707275

PATIENT
  Sex: Male
  Weight: 138.8 kg

DRUGS (6)
  1. TOPROL-XL [Concomitant]
     Route: 048
     Dates: start: 20000201
  2. PLACEBO [Suspect]
     Route: 058
     Dates: start: 20090330
  3. ASACOL [Concomitant]
     Indication: COLITIS ULCERATIVE
     Route: 048
     Dates: start: 20080328
  4. IMURAN [Concomitant]
     Indication: COLITIS ULCERATIVE
     Route: 048
     Dates: start: 20080604
  5. PLACEBO [Suspect]
     Indication: COLITIS ULCERATIVE
     Route: 058
     Dates: start: 20090205
  6. PLACEBO [Suspect]
     Route: 058
     Dates: start: 20090303

REACTIONS (1)
  - DEMYELINATION [None]
